FAERS Safety Report 19757773 (Version 1)
Quarter: 2021Q3

REPORT INFORMATION
  Report Type: Report from Study
  Country: US (occurrence: US)
  Receive Date: 20210828
  Receipt Date: 20210828
  Transmission Date: 20211014
  Serious: No
  Sender: FDA-Public Use
  Company Number: NVSC2021US042235

PATIENT
  Sex: Male

DRUGS (1)
  1. ENTRESTO [Suspect]
     Active Substance: SACUBITRIL\VALSARTAN
     Indication: PRODUCT USED FOR UNKNOWN INDICATION
     Dosage: 24/26 MG (SACUBITRIL 24.3MG VALSARTAN 25.7MG), BID
     Route: 048
     Dates: start: 202001

REACTIONS (2)
  - No adverse event [Unknown]
  - Dizziness [Unknown]
